FAERS Safety Report 13409857 (Version 5)
Quarter: 2018Q2

REPORT INFORMATION
  Report Type: Spontaneous
  Country: US (occurrence: US)
  Receive Date: 20170406
  Receipt Date: 20180606
  Transmission Date: 20180711
  Serious: Yes (Other)
  Sender: FDA-Public Use
  Company Number: US-PFIZER INC-2017145337

PATIENT
  Age: 71 Year
  Sex: Female

DRUGS (2)
  1. PLAQUENIL [Suspect]
     Active Substance: HYDROXYCHLOROQUINE SULFATE
     Dosage: UNK
  2. XELJANZ [Suspect]
     Active Substance: TOFACITINIB CITRATE
     Dosage: 5 MG, UNK
     Dates: start: 201407

REACTIONS (5)
  - Pneumonia [Recovered/Resolved]
  - Vitamin D decreased [Unknown]
  - Malaise [Unknown]
  - Eye disorder [Recovered/Resolved]
  - Upper respiratory tract infection [Unknown]
